FAERS Safety Report 9822704 (Version 1)
Quarter: 2014Q1

REPORT INFORMATION
  Report Type: Spontaneous
  Country: US (occurrence: US)
  Receive Date: 20140116
  Receipt Date: 20140116
  Transmission Date: 20141002
  Serious: No
  Sender: FDA-Public Use
  Company Number: US-ALLERGAN-1304889US

PATIENT
  Age: 76 Year
  Sex: Female

DRUGS (3)
  1. PRED FORTE [Suspect]
     Indication: IRITIS
     Dosage: 2 GTT, QD
     Route: 047
     Dates: start: 2004
  2. PRED FORTE [Suspect]
     Indication: UVEITIS
  3. BLOOD PRESSURE MEDICATION NOS [Concomitant]
     Indication: HYPERTENSION
     Dosage: UNK

REACTIONS (3)
  - Eye irritation [Recovered/Resolved]
  - Uveitis [Recovered/Resolved]
  - Iritis [Recovered/Resolved]
